FAERS Safety Report 4985985-7 (Version None)
Quarter: 2006Q2

REPORT INFORMATION
  Report Type: 
  Country: None (occurrence: None)
  Receive Date: 20060421
  Receipt Date: 20060407
  Transmission Date: 20061013
  Serious: Yes (Hospitalization)
  Sender: FDA-Public Use
  Company Number: 223596

PATIENT
  Age: 70 Year
  Sex: Male
  Weight: 66 kg

DRUGS (11)
  1. RITUXAMAB            (RITUXIMAB) [Suspect]
     Indication: RHEUMATOID ARTHRITIS
     Dosage: 1000 MG, DAYS 1+15, INTRAVENOUS
     Route: 042
     Dates: start: 20060106, end: 20060120
  2. PREDNISONE TAB [Suspect]
     Indication: RHEUMATOID ARTHRITIS
     Dosage: ORAL
     Route: 048
     Dates: start: 20060107, end: 20060119
  3. METHYLPREDNISOLONE [Suspect]
     Indication: RHEUMATOID ARTHRITIS
     Dosage: 100 MG, DAYS 1+15, INTRAVENOUS
     Route: 042
     Dates: start: 20060106, end: 20060120
  4. METHOTREXATE [Concomitant]
  5. ACIDE FOLIQUE           (FOLIC ACID) [Concomitant]
  6. PREDNISONE TAB [Concomitant]
  7. NAPROXEN [Concomitant]
  8. OMEPRAZOLE [Concomitant]
  9. RISEDRONIC ACID [Concomitant]
  10. CACIT D3 (CALCIUM CARBONATE, CHOLECALCIFEROL) [Concomitant]
  11. DAFALGAN CODEINE        (ACETAMINOPHEN, CODEINE PHOSPHATE) [Concomitant]

REACTIONS (10)
  - COMPLEMENT FACTOR C3 DECREASED [None]
  - COMPLEMENT FACTOR C4 DECREASED [None]
  - DIVERTICULUM [None]
  - DRUG INEFFECTIVE [None]
  - HYDROCELE [None]
  - HYPERGLYCAEMIA [None]
  - LARGE INTESTINE PERFORATION [None]
  - PERITONITIS [None]
  - SEPTIC SHOCK [None]
  - SIGMOIDITIS [None]
